FAERS Safety Report 7231583-4 (Version None)
Quarter: 2011Q1

REPORT INFORMATION
  Report Type: 
  Country: None (occurrence: None)
  Receive Date: 20110118
  Receipt Date: 20110113
  Transmission Date: 20110831
  Serious: Yes (Death, Hospitalization)
  Sender: FDA-Public Use
  Company Number: PHHO2011US00720

PATIENT
  Sex: Female
  Weight: 106 kg

DRUGS (1)
  1. AFINITOR [Suspect]
     Indication: COLORECTAL CANCER METASTATIC
     Dosage: 5/100 MG
     Route: 048
     Dates: start: 20101214, end: 20101222

REACTIONS (3)
  - THROMBOCYTOPENIA [None]
  - HAEMOPTYSIS [None]
  - HAEMORRHAGE [None]
